FAERS Safety Report 15312966 (Version 2)
Quarter: 2018Q3

REPORT INFORMATION
  Report Type: Spontaneous
  Country: US (occurrence: US)
  Receive Date: 20180823
  Receipt Date: 20180928
  Transmission Date: 20181010
  Serious: Yes (Hospitalization, Other)
  Sender: FDA-Public Use
  Company Number: US-ACTELION-A-NJ2018-177589

PATIENT
  Age: 44 Year
  Sex: Male
  Weight: 79.8 kg

DRUGS (7)
  1. ORENITRAM [Concomitant]
     Active Substance: TREPROSTINIL
  2. TREPROSTINIL SODIUM [Suspect]
     Active Substance: TREPROSTINIL SODIUM
     Indication: PULMONARY ARTERIAL HYPERTENSION
     Dosage: 0.031 UG/KG
     Route: 042
     Dates: start: 20180208
  3. TREPROSTINIL SODIUM [Suspect]
     Active Substance: TREPROSTINIL SODIUM
     Dosage: 0.054 UG/KG, CONT INFUS
     Route: 042
  4. GABAPENTIN. [Concomitant]
     Active Substance: GABAPENTIN
     Dosage: UNK
     Dates: start: 2018
  5. LYRICA [Concomitant]
     Active Substance: PREGABALIN
     Dosage: UNK
     Dates: start: 2018
  6. ADEMPAS [Concomitant]
     Active Substance: RIOCIGUAT
  7. OPSUMIT [Suspect]
     Active Substance: MACITENTAN
     Indication: PULMONARY HYPERTENSION
     Dosage: 10 MG, QD
     Route: 048
     Dates: end: 2018

REACTIONS (14)
  - Pain in extremity [Unknown]
  - Heat exhaustion [Unknown]
  - Liver disorder [Unknown]
  - Liver transplant [Unknown]
  - Eye movement disorder [Unknown]
  - Gait inability [Unknown]
  - Loss of consciousness [Unknown]
  - Dyskinesia [Unknown]
  - Presyncope [Unknown]
  - Back pain [Unknown]
  - Syncope [Unknown]
  - Memory impairment [Unknown]
  - Seizure [Unknown]
  - Chest pain [Unknown]

NARRATIVE: CASE EVENT DATE: 201805
